FAERS Safety Report 13628043 (Version 1)
Quarter: 2017Q2

REPORT INFORMATION
  Report Type: Spontaneous
  Country: US (occurrence: US)
  Receive Date: 20170608
  Receipt Date: 20170608
  Transmission Date: 20170830
  Serious: No
  Sender: FDA-Public Use
  Company Number: US-PERRIGO-16US022532

PATIENT
  Sex: Male
  Weight: 82.54 kg

DRUGS (3)
  1. LIPID MODIFYING AGENTS [Concomitant]
     Active Substance: UNSPECIFIED INGREDIENT
     Indication: BLOOD CHOLESTEROL INCREASED
     Dosage: UNK
     Route: 065
  2. VITAMINS NOS [Concomitant]
     Active Substance: VITAMINS
     Indication: SUPPLEMENTATION THERAPY
     Dosage: UNK
     Route: 065
  3. MINOXIDIL. [Suspect]
     Active Substance: MINOXIDIL
     Indication: ALOPECIA
     Dosage: 1/2 CAPFUL OR MORE, BID
     Route: 061
     Dates: start: 2013, end: 201611

REACTIONS (4)
  - Application site vesicles [Recovering/Resolving]
  - Incorrect dose administered [Recovered/Resolved]
  - Application site erythema [Recovering/Resolving]
  - Application site irritation [Recovering/Resolving]

NARRATIVE: CASE EVENT DATE: 2013
